FAERS Safety Report 24739962 (Version 1)
Quarter: 2024Q4

REPORT INFORMATION
  Report Type: Spontaneous
  Country: JP (occurrence: JP)
  Receive Date: 20241216
  Receipt Date: 20241216
  Transmission Date: 20250115
  Serious: Yes (Death)
  Sender: NIVAGEN PHARMACEUTICALS INC
  Company Number: JP-NPI-000077

PATIENT
  Age: 86 Year
  Sex: Male

DRUGS (4)
  1. SULFAMETHOXAZOLE [Suspect]
     Active Substance: SULFAMETHOXAZOLE
     Indication: Antifungal prophylaxis
     Route: 048
  2. TRIMETHOPRIM [Suspect]
     Active Substance: TRIMETHOPRIM
     Indication: Antifungal prophylaxis
     Route: 048
  3. DEXAMETHASONE [Suspect]
     Active Substance: DEXAMETHASONE
     Indication: Peritumoural oedema
     Route: 065
  4. TEMOZOLOMIDE [Suspect]
     Active Substance: TEMOZOLOMIDE
     Indication: Glioblastoma
     Route: 065

REACTIONS (5)
  - Systemic candida [Fatal]
  - Septic shock [Fatal]
  - Multiple organ dysfunction syndrome [Fatal]
  - Lymphopenia [Fatal]
  - Condition aggravated [Fatal]
